FAERS Safety Report 7313245-8 (Version None)
Quarter: 2011Q1

REPORT INFORMATION
  Report Type: 
  Country: None (occurrence: None)
  Receive Date: 20110225
  Receipt Date: 20110218
  Transmission Date: 20110831
  Serious: Yes (Other)
  Sender: FDA-Public Use
  Company Number: US-SHIRE-SPV1-2011-00301

PATIENT

DRUGS (4)
  1. RISPERDAL [Suspect]
     Dosage: UNK
     Route: 048
     Dates: start: 20110101, end: 20110101
  2. ANTIDEPRESSANT #2 [Suspect]
     Dosage: UNK
     Route: 048
     Dates: start: 20110101, end: 20110101
  3. INTUNIV [Suspect]
     Dosage: 3 MG, UNK
     Route: 048
     Dates: start: 20110101, end: 20110101
  4. ANTIDEPRESSANT #1 [Suspect]
     Dosage: UNK
     Route: 048
     Dates: start: 20110101, end: 20110101

REACTIONS (4)
  - DRUG DIVERSION [None]
  - MALAISE [None]
  - PHYSICAL ASSAULT [None]
  - ACCIDENTAL EXPOSURE [None]
